FAERS Safety Report 10926895 (Version 1)
Quarter: 2015Q1

REPORT INFORMATION
  Report Type: Spontaneous
  Country: US (occurrence: None)
  Receive Date: 20150212
  Receipt Date: 20150212
  Transmission Date: 20150721
  Serious: No
  Sender: FDA-Public Use
  Company Number: TPA2011A08504

PATIENT
  Age: 60 Year
  Sex: Female

DRUGS (2)
  1. ULORIC [Suspect]
     Active Substance: FEBUXOSTAT
     Indication: GOUT
  2. DYNACIRC [Suspect]
     Active Substance: ISRADIPINE

REACTIONS (2)
  - Swelling [None]
  - Rash generalised [None]
